FAERS Safety Report 5724626-8 (Version None)
Quarter: 2008Q2

REPORT INFORMATION
  Report Type: 
  Country: None (occurrence: None)
  Receive Date: 20080430
  Receipt Date: 20080430
  Transmission Date: 20081010
  Serious: Yes (Other)
  Sender: FDA-Public Use
  Company Number: None

PATIENT
  Age: 43 Year
  Sex: Male
  Weight: 69.3 kg

DRUGS (7)
  1. RITUXIMAB [Suspect]
     Indication: LYMPHOMA
     Dosage: 724 MG IV; START AT 25 ML/HR X 30 MIN
     Route: 042
  2. ALLOPURINOL [Concomitant]
  3. CEFTAZIDIME [Concomitant]
  4. OMEPRAZOLE [Concomitant]
  5. OXYCODONE CR [Concomitant]
  6. PREDNISONE TAB [Concomitant]
  7. BACTRIM DS [Concomitant]

REACTIONS (1)
  - CYTOKINE RELEASE SYNDROME [None]
